FAERS Safety Report 7264898-4 (Version None)
Quarter: 2011Q1

REPORT INFORMATION
  Report Type: 
  Country: None (occurrence: None)
  Receive Date: 20110131
  Receipt Date: 20110120
  Transmission Date: 20110831
  Serious: Yes (Hospitalization)
  Sender: FDA-Public Use
  Company Number: CA-JNJFOC-20100510674

PATIENT
  Sex: Female
  Weight: 81 kg

DRUGS (9)
  1. QUESTRAN [Concomitant]
  2. REMICADE [Suspect]
     Indication: CROHN'S DISEASE
     Route: 042
  3. DIOVAN [Concomitant]
  4. HYDROCHLOROTHIAZIDE [Concomitant]
  5. CLONAZEPAM [Concomitant]
  6. PANTOLOC [Concomitant]
  7. REMICADE [Suspect]
     Route: 042
  8. IMURAN [Concomitant]
     Route: 048
  9. CLONIDINE [Concomitant]

REACTIONS (2)
  - VOMITING [None]
  - ABDOMINAL PAIN [None]
